FAERS Safety Report 9526824 (Version 1)
Quarter: 2013Q3

REPORT INFORMATION
  Report Type: Report from Study
  Country: BR (occurrence: BR)
  Receive Date: 20130916
  Receipt Date: 20130916
  Transmission Date: 20140515
  Serious: Yes (Hospitalization, Other)
  Sender: FDA-Public Use
  Company Number: PHHY2013BR101868

PATIENT
  Sex: Female

DRUGS (2)
  1. EXJADE [Suspect]
     Indication: SERUM FERRITIN DECREASED
     Dosage: 750 MG, 3 TABLETS OF 250 MG
  2. FOLIC ACID [Concomitant]
     Dosage: UNK UKN, UNK

REACTIONS (2)
  - Sickle cell anaemia [Recovered/Resolved]
  - Pneumonia [Recovered/Resolved]
